FAERS Safety Report 9350572 (Version 2)
Quarter: 2013Q3

REPORT INFORMATION
  Report Type: Spontaneous
  Country: IE (occurrence: IE)
  Receive Date: 20130617
  Receipt Date: 20130704
  Transmission Date: 20140515
  Serious: Yes (Hospitalization)
  Sender: FDA-Public Use
  Company Number: IE-ACCORD-018082

PATIENT
  Age: 41 Year
  Sex: Male

DRUGS (1)
  1. ESCITALOPRAM [Suspect]
     Indication: DEPRESSION

REACTIONS (3)
  - Hyponatraemia [Recovered/Resolved]
  - Polydipsia [Recovered/Resolved]
  - Rhabdomyolysis [Recovering/Resolving]
